FAERS Safety Report 24016861 (Version 1)
Quarter: 2024Q2

REPORT INFORMATION
  Report Type: Spontaneous
  Country: US (occurrence: US)
  Receive Date: 20240626
  Receipt Date: 20240626
  Transmission Date: 20240716
  Serious: Yes (Disabling)
  Sender: FDA-Public Use
  Company Number: US-GE HEALTHCARE-2024CSU006940

PATIENT
  Age: 40 Year
  Sex: Female

DRUGS (2)
  1. OMNIPAQUE [Suspect]
     Active Substance: IOHEXOL
     Indication: Computerised tomogram abdomen
     Dosage: 75 ML, TOTAL
     Route: 042
     Dates: start: 20231210, end: 20231210
  2. OMNIPAQUE [Suspect]
     Active Substance: IOHEXOL
     Indication: Computerised tomogram thorax
     Dosage: 80 ML, TOTAL
     Route: 042
     Dates: start: 20231219, end: 20231219

REACTIONS (11)
  - Gait inability [Recovered/Resolved]
  - Muscular weakness [Recovered/Resolved]
  - Muscle atrophy [Recovering/Resolving]
  - Flank pain [Recovered/Resolved]
  - Myalgia [Recovered/Resolved]
  - Muscle rigidity [Recovered/Resolved]
  - Back pain [Recovered/Resolved]
  - Chest pain [Recovered/Resolved]
  - Dyspnoea [Recovered/Resolved]
  - Peripheral swelling [Recovered/Resolved]
  - Headache [Recovered/Resolved]

NARRATIVE: CASE EVENT DATE: 20231224
